FAERS Safety Report 24037632 (Version 1)
Quarter: 2024Q3

REPORT INFORMATION
  Report Type: Spontaneous
  Country: US (occurrence: US)
  Receive Date: 20240702
  Receipt Date: 20240702
  Transmission Date: 20241016
  Serious: Yes (Hospitalization, Other)
  Sender: DR REDDYS
  Company Number: US-DRL-USA-LIT/USA/24/0009314

PATIENT
  Age: 69 Year
  Sex: Female

DRUGS (4)
  1. DOXYCYCLINE [Suspect]
     Active Substance: DOXYCYCLINE\DOXYCYCLINE HYCLATE
     Indication: Malaria
  2. ATOVAQUONE\PROGUANIL HYDROCHLORIDE [Suspect]
     Active Substance: ATOVAQUONE\PROGUANIL HYDROCHLORIDE
     Indication: Malaria
  3. METRONIDAZOLE [Suspect]
     Active Substance: METRONIDAZOLE
     Indication: Malaria
  4. CEFTRIAXONE [Suspect]
     Active Substance: CEFTRIAXONE\CEFTRIAXONE SODIUM
     Indication: Malaria

REACTIONS (8)
  - Drug ineffective for unapproved indication [Unknown]
  - Condition aggravated [Unknown]
  - Acute respiratory distress syndrome [Unknown]
  - Encephalopathy [Unknown]
  - Anaemia [Unknown]
  - Acute kidney injury [Unknown]
  - Haematuria [Unknown]
  - Pleural effusion [Unknown]
